FAERS Safety Report 9439184 (Version 2)
Quarter: 2014Q1

REPORT INFORMATION
  Report Type: Spontaneous
  Country: US (occurrence: US)
  Receive Date: 20130803
  Receipt Date: 20140116
  Transmission Date: 20141002
  Serious: Yes (Death, Hospitalization)
  Sender: FDA-Public Use
  Company Number: US-B.I. PHARMACEUTICALS,INC./RIDGEFIELD-2013-BI-23162BP

PATIENT
  Sex: Female
  Weight: 53.98 kg

DRUGS (8)
  1. PRADAXA [Suspect]
     Dosage: 300 MG
     Route: 048
     Dates: start: 20120111, end: 20121015
  2. CLARITIN [Concomitant]
     Dosage: 10 MG
     Route: 048
  3. SYNTHROID [Concomitant]
     Dosage: 50 MCG
     Route: 048
  4. ATENOLOL [Concomitant]
     Dosage: 100 MG
     Route: 048
  5. DIGOXIN [Concomitant]
     Dosage: 250 MCG
     Route: 048
  6. PROPAFENONE [Concomitant]
     Dosage: 450 MG
     Route: 048
  7. SIMVASTATIN [Concomitant]
     Dosage: 20 MG
     Route: 048
  8. TRIAMTERENE-HYDROCHLOROTHIAZIDE [Concomitant]
     Route: 048

REACTIONS (1)
  - Haemorrhage intracranial [Fatal]
